FAERS Safety Report 7251691-1 (Version None)
Quarter: 2011Q1

REPORT INFORMATION
  Report Type: 
  Country: None (occurrence: None)
  Receive Date: 20110128
  Receipt Date: 20110118
  Transmission Date: 20110831
  Serious: No
  Sender: FDA-Public Use
  Company Number: DE-ELI_LILLY_AND_COMPANY-DE201101004334

PATIENT
  Age: 82 Year
  Sex: Female
  Weight: 60 kg

DRUGS (8)
  1. MARCUMAR [Concomitant]
     Indication: ARRHYTHMIA
     Dosage: 0.25 D/F, UNK
     Route: 048
     Dates: start: 20101209
  2. ZYPREXA [Suspect]
     Indication: DEPRESSION
     Dosage: 5 MG, UNK
     Route: 048
     Dates: start: 20101215, end: 20101222
  3. TOREM [Concomitant]
     Indication: HYPERTENSION
     Dosage: 10 MG, UNK
     Route: 048
     Dates: start: 20101209
  4. REMERGIL [Concomitant]
     Indication: DEPRESSION
     Dosage: 45 MG, UNK
     Route: 048
     Dates: start: 20101209
  5. METOPROLOL SUCCINATE [Concomitant]
     Indication: HYPERTENSION
     Dosage: 47.5 MG, UNK
     Route: 048
     Dates: start: 20101209
  6. DELIX [Concomitant]
     Indication: HYPERTENSION
     Dosage: 5 MG, UNK
     Route: 048
     Dates: start: 20101209
  7. XIMOVAN [Concomitant]
     Indication: INSOMNIA
     Dosage: 7.5 MG, UNK
     Route: 048
     Dates: start: 20101209
  8. ERGENYL CHRONO [Concomitant]
     Indication: RESTLESSNESS
     Dosage: 600 MG, UNK
     Route: 048
     Dates: start: 20110102

REACTIONS (2)
  - OFF LABEL USE [None]
  - THROMBOCYTOPENIC PURPURA [None]
